FAERS Safety Report 16487170 (Version 1)
Quarter: 2019Q3

REPORT INFORMATION
  Report Type: Spontaneous
  Country: US (occurrence: US)
  Receive Date: 20190626
  Receipt Date: 20190626
  Transmission Date: 20191004
  Serious: No
  Sender: FDA-Public Use
  Company Number: None

PATIENT
  Age: 63 Year
  Sex: Male
  Weight: 55.5 kg

DRUGS (1)
  1. YESCARTA [Suspect]
     Active Substance: AXICABTAGENE CILOLEUCEL
     Indication: NON-HODGKIN^S LYMPHOMA REFRACTORY
     Dosage: ?          OTHER FREQUENCY:SINGLE DOSE;?
     Route: 041

REACTIONS (3)
  - Pyrexia [None]
  - Hypotension [None]
  - Cardiorenal syndrome [None]

NARRATIVE: CASE EVENT DATE: 20190616
